FAERS Safety Report 26060081 (Version 1)
Quarter: 2025Q4

REPORT INFORMATION
  Report Type: Spontaneous
  Country: CA (occurrence: CA)
  Receive Date: 20251118
  Receipt Date: 20251118
  Transmission Date: 20260117
  Serious: Yes (Other)
  Sender: LUNDBECK
  Company Number: CA-LUNDBECK-DKLU4021844

PATIENT
  Age: 1 Week
  Sex: Female

DRUGS (8)
  1. VIGABATRIN [Suspect]
     Active Substance: VIGABATRIN
     Indication: Generalised tonic-clonic seizure
     Dosage: 250 MILLIGRAM
  2. CLOBAZAM [Concomitant]
     Active Substance: CLOBAZAM
     Indication: Generalised tonic-clonic seizure
  3. LEVETIRACETAM [Suspect]
     Active Substance: LEVETIRACETAM
     Indication: Generalised tonic-clonic seizure
     Dosage: 150 MILLIGRAM
  4. ARGININE [Concomitant]
     Active Substance: ARGININE
     Indication: Epilepsy
     Dosage: 150 MILLIGRAM PER KILOGRAM
  5. LEUCOVORIN [Concomitant]
     Active Substance: LEUCOVORIN\LEUCOVORIN CALCIUM
     Indication: Epilepsy
     Dosage: 5 MILLIGRAM
  6. PHENYTOIN [Concomitant]
     Active Substance: PHENYTOIN
     Indication: Generalised tonic-clonic seizure
  7. PYRIDOXINE [Concomitant]
     Active Substance: PYRIDOXINE
     Indication: Epilepsy
     Dosage: 30.0 MILLIGRAM PER KILOGRAM
  8. PYRIDOXINE [Concomitant]
     Active Substance: PYRIDOXINE
     Dosage: 75 MILLIGRAM PER KILOGRAM

REACTIONS (2)
  - Seizure [Unknown]
  - Off label use [Unknown]
